FAERS Safety Report 5167610-8 (Version None)
Quarter: 2006Q4

REPORT INFORMATION
  Report Type: 
  Country: None (occurrence: None)
  Receive Date: 20060919
  Receipt Date: 20060726
  Transmission Date: 20070319
  Serious: No
  Sender: FDA-Public Use
  Company Number: BDI-008462

PATIENT
  Age: 47 Year
  Sex: Female

DRUGS (2)
  1. MULTIHANCE [Suspect]
     Indication: FIBROSIS
     Dosage: 10 ML ONCE IV
     Route: 042
     Dates: start: 20060719, end: 20060719
  2. MULTIHANCE [Suspect]
     Indication: NUCLEAR MAGNETIC RESONANCE IMAGING
     Dosage: 10 ML ONCE IV
     Route: 042
     Dates: start: 20060719, end: 20060719

REACTIONS (3)
  - DIZZINESS [None]
  - ERYTHEMA [None]
  - FEELING HOT [None]
